FAERS Safety Report 6899255-3 (Version None)
Quarter: 2010Q3

REPORT INFORMATION
  Report Type: 
  Country: None (occurrence: None)
  Receive Date: 20100802
  Receipt Date: 20080328
  Transmission Date: 20110219
  Serious: No
  Sender: FDA-Public Use
  Company Number: US-PFIZER INC-2007095457

PATIENT
  Sex: Male
  Weight: 88 kg

DRUGS (9)
  1. LYRICA [Suspect]
     Indication: BURNING SENSATION
     Route: 048
     Dates: start: 20071101
  2. LYRICA [Suspect]
     Indication: NEUROPATHY PERIPHERAL
  3. TOPAMAX [Concomitant]
     Route: 048
  4. OXYBUTYNIN CHLORIDE [Concomitant]
     Route: 048
  5. TAMSULOSIN HYDROCHLORIDE [Concomitant]
     Route: 048
  6. PROSCAR [Concomitant]
     Route: 048
  7. PRIMIDONE [Concomitant]
  8. XANAX [Concomitant]
  9. FOLIC ACID [Concomitant]

REACTIONS (5)
  - BURNING SENSATION [None]
  - HYPOAESTHESIA [None]
  - JOINT STIFFNESS [None]
  - VISION BLURRED [None]
  - WEIGHT INCREASED [None]
